FAERS Safety Report 10169700 (Version 1)
Quarter: 2014Q2

REPORT INFORMATION
  Report Type: Report from Study
  Country: KR (occurrence: KR)
  Receive Date: 20140513
  Receipt Date: 20140513
  Transmission Date: 20141212
  Serious: Yes (Hospitalization)
  Sender: FDA-Public Use
  Company Number: KR-PFIZER INC-2014125565

PATIENT
  Age: 51 Year
  Sex: Male
  Weight: 91 kg

DRUGS (5)
  1. SUTENE [Suspect]
     Indication: METASTATIC RENAL CELL CARCINOMA
     Dosage: 50 MG, 1X/DAY
     Route: 048
     Dates: start: 20140204, end: 20140303
  2. SUTENE [Suspect]
     Dosage: 50 MG, 1X/DAY
     Route: 048
     Dates: start: 20140316
  3. CODEINE PHOSPHATE HANA [Concomitant]
     Indication: COUGH
     Dosage: UNK
     Route: 048
  4. PRITORPLUS [Concomitant]
     Indication: HYPERTENSION
     Dosage: UNK
     Route: 048
     Dates: start: 2012
  5. ORODIPINE [Concomitant]
     Indication: HYPERTENSION
     Dosage: UNK
     Route: 048
     Dates: start: 2012

REACTIONS (1)
  - Pleural effusion [Recovered/Resolved]
